FAERS Safety Report 4632625-2 (Version None)
Quarter: 2005Q2

REPORT INFORMATION
  Report Type: 
  Country: None (occurrence: None)
  Receive Date: 20050331
  Receipt Date: 20040813
  Transmission Date: 20051028
  Serious: Yes (Hospitalization)
  Sender: FDA-Public Use
  Company Number: 200414024BCC

PATIENT
  Age: 50 Year
  Sex: Female
  Weight: 69.4003 kg

DRUGS (5)
  1. ALEVE [Suspect]
     Indication: BACK PAIN
     Dosage: 220 MG, ONCE, ORAL
     Route: 048
     Dates: start: 20040811
  2. ALEVE [Suspect]
     Indication: HEADACHE
     Dosage: 220 MG, ONCE, ORAL
     Route: 048
     Dates: start: 20040811
  3. ALEVE [Suspect]
     Indication: RHEUMATOID ARTHRITIS
     Dosage: 220 MG, ONCE, ORAL
     Route: 048
     Dates: start: 20040811
  4. MULTIVITAMIN FOR WOMEN [Concomitant]
  5. SOY SUPPLEMENT (FOR HOT FLASHES) [Concomitant]

REACTIONS (11)
  - DIFFICULTY IN WALKING [None]
  - DYSPNOEA [None]
  - EXOPHTHALMOS [None]
  - GENERALISED ERYTHEMA [None]
  - HYPERSENSITIVITY [None]
  - HYPERTENSION [None]
  - MENTAL IMPAIRMENT [None]
  - OCULAR HYPERAEMIA [None]
  - PAIN [None]
  - SKIN DISCOLOURATION [None]
  - THROAT TIGHTNESS [None]
